FAERS Safety Report 8370917-4 (Version None)
Quarter: 2012Q2

REPORT INFORMATION
  Report Type: 
  Country: None (occurrence: None)
  Receive Date: 20120518
  Receipt Date: 20120105
  Transmission Date: 20120825
  Serious: No
  Sender: FDA-Public Use
  Company Number: US-BAUSCH-2012BL000139

PATIENT

DRUGS (1)
  1. IPRATROPIUM BROMIDE [Suspect]

REACTIONS (2)
  - COUGH [None]
  - MALAISE [None]
